FAERS Safety Report 5815422-1 (Version None)
Quarter: 2008Q3

REPORT INFORMATION
  Report Type: 
  Country: None (occurrence: None)
  Receive Date: 20080715
  Receipt Date: 20080707
  Transmission Date: 20090109
  Serious: Yes (Death)
  Sender: FDA-Public Use
  Company Number: CLOF-1000225

PATIENT

DRUGS (1)
  1. CLOLAR [Suspect]
     Indication: BONE MARROW CONDITIONING REGIMEN
     Dosage: 40 MG/M2, QDX5, INTRAVENOUS
     Route: 042

REACTIONS (1)
  - PNEUMONITIS [None]
